FAERS Safety Report 10694901 (Version 2)
Quarter: 2015Q1

REPORT INFORMATION
  Report Type: Report from Study
  Country: US (occurrence: US)
  Receive Date: 20150107
  Receipt Date: 20150107
  Transmission Date: 20150721
  Serious: Yes (Other)
  Sender: FDA-Public Use
  Company Number: PHEH2014US013647

PATIENT
  Age: 57 Year
  Sex: Male

DRUGS (1)
  1. EXJADE [Suspect]
     Active Substance: DEFERASIROX
     Indication: IRON OVERLOAD
     Dosage: 3500 MG, QD
     Route: 048
     Dates: start: 20140623

REACTIONS (7)
  - Dizziness [Unknown]
  - Lethargy [Unknown]
  - Feeling abnormal [Unknown]
  - Accidental overdose [Unknown]
  - Abdominal pain upper [Unknown]
  - Fall [Unknown]
  - Spinal fracture [Unknown]

NARRATIVE: CASE EVENT DATE: 20140623
